FAERS Safety Report 8547957-5 (Version None)
Quarter: 2012Q3

REPORT INFORMATION
  Report Type: 
  Country: None (occurrence: None)
  Receive Date: 20120729
  Receipt Date: 20120719
  Transmission Date: 20120928
  Serious: Yes (Other)
  Sender: FDA-Public Use
  Company Number: GB-TEVA-349459ISR

PATIENT
  Sex: Female
  Weight: 89 kg

DRUGS (4)
  1. VALPROATE SODIUM (EPILIM) [Concomitant]
  2. COPAXONE [Suspect]
     Indication: RELAPSING-REMITTING MULTIPLE SCLEROSIS
     Dosage: 20 MILLIGRAM;
     Route: 058
  3. LANSOPRAZOLE [Concomitant]
  4. ALLOPURINOL [Concomitant]

REACTIONS (4)
  - MULTIPLE SCLEROSIS RELAPSE [None]
  - URINARY TRACT INFECTION [None]
  - TREMOR [None]
  - CONSTIPATION [None]
